FAERS Safety Report 5162127-9 (Version None)
Quarter: 2006Q4

REPORT INFORMATION
  Report Type: 
  Country: None (occurrence: None)
  Receive Date: 20061121
  Receipt Date: 20061114
  Transmission Date: 20070319
  Serious: Yes (Death)
  Sender: FDA-Public Use
  Company Number: 2006JP004617

PATIENT
  Age: 82 Year
  Sex: Female

DRUGS (8)
  1. PROGRAF [Suspect]
     Indication: RHEUMATOID ARTHRITIS
     Dosage: 1 MG, UNKNOWN/D, ORAL - SEE IMAGE
     Route: 048
     Dates: start: 20060501, end: 20060701
  2. PROGRAF [Suspect]
     Indication: RHEUMATOID ARTHRITIS
     Dosage: 1 MG, UNKNOWN/D, ORAL - SEE IMAGE
     Route: 048
     Dates: start: 20060914, end: 20060927
  3. PROGRAF [Suspect]
     Indication: RHEUMATOID ARTHRITIS
     Dosage: 1 MG, UNKNOWN/D, ORAL - SEE IMAGE
     Route: 048
     Dates: start: 20060803
  4. PROGRAF [Suspect]
     Indication: RHEUMATOID ARTHRITIS
     Dosage: 1 MG, UNKNOWN/D, ORAL - SEE IMAGE
     Route: 048
     Dates: start: 20060928
  5. TAKEPRON (LANSOPRAZOLE) ORODISPERSABE CR TABLET [Concomitant]
  6. RIMATIL (BUCILLAMINE) TABLET [Concomitant]
  7. METALCAPTASE CAPSULE [Concomitant]
  8. CONIEL (BENDIPINE HYDROCHLROIDE) TABLET [Concomitant]

REACTIONS (7)
  - BLOOD UREA INCREASED [None]
  - CARDIAC HYPERTROPHY [None]
  - CARDIO-RESPIRATORY ARREST [None]
  - MYOCARDIAL INFARCTION [None]
  - OEDEMA PERIPHERAL [None]
  - SUDDEN DEATH [None]
  - TREATMENT NONCOMPLIANCE [None]
